FAERS Safety Report 7298661-5 (Version None)
Quarter: 2011Q1

REPORT INFORMATION
  Report Type: 
  Country: None (occurrence: None)
  Receive Date: 20110217
  Receipt Date: 20110211
  Transmission Date: 20110831
  Serious: Yes (Hospitalization)
  Sender: FDA-Public Use
  Company Number: FR-JNJFOC-20100907975

PATIENT
  Sex: Female
  Weight: 98 kg

DRUGS (5)
  1. RISPERDAL [Suspect]
     Indication: PSYCHOTIC DISORDER
     Dosage: 2 MG IN THE MORNING AND 4 MG IN THE EVENING FOR 31-DEC-2008)
     Route: 048
     Dates: start: 20081105, end: 20100830
  2. DEPAKOTE [Concomitant]
     Indication: DRUG THERAPY
     Route: 048
  3. IMOVANE [Concomitant]
     Indication: SLEEP DISORDER THERAPY
     Route: 048
  4. LEPTICUR [Concomitant]
     Route: 048
  5. LOXAPAC [Concomitant]
     Indication: PSYCHOTIC DISORDER
     Route: 048

REACTIONS (4)
  - CONDITION AGGRAVATED [None]
  - HYPERPROLACTINAEMIA [None]
  - GALACTORRHOEA [None]
  - TREATMENT NONCOMPLIANCE [None]
